FAERS Safety Report 9305233 (Version 1)
Quarter: 2013Q2

REPORT INFORMATION
  Report Type: Spontaneous
  Country: US (occurrence: US)
  Receive Date: 20130523
  Receipt Date: 20130523
  Transmission Date: 20140414
  Serious: Yes (Hospitalization)
  Sender: FDA-Public Use
  Company Number: US-JNJFOC-20130509758

PATIENT
  Age: 57 Year
  Sex: Female

DRUGS (5)
  1. XARELTO [Suspect]
     Indication: THROMBOSIS PROPHYLAXIS
     Route: 048
     Dates: start: 20130409, end: 20130420
  2. XARELTO [Suspect]
     Indication: KNEE OPERATION
     Route: 048
     Dates: start: 20130409, end: 20130420
  3. WARFARIN [Suspect]
     Indication: PRODUCT USED FOR UNKNOWN INDICATION
     Route: 065
  4. PREDNISONE [Concomitant]
     Route: 065
  5. VANCOMYCIN [Concomitant]
     Route: 065

REACTIONS (1)
  - Pulmonary embolism [Unknown]
